FAERS Safety Report 8272237-5 (Version None)
Quarter: 2012Q2

REPORT INFORMATION
  Report Type: 
  Country: None (occurrence: None)
  Receive Date: 20120410
  Receipt Date: 20111205
  Transmission Date: 20120825
  Serious: Yes (Death, Other)
  Sender: FDA-Public Use
  Company Number: PHHY2011US108207

PATIENT
  Age: 76 Year
  Sex: Female

DRUGS (7)
  1. COLCHICINE [Suspect]
  2. ISRADIPINE [Suspect]
  3. CLONAZEPAM [Suspect]
  4. QUETIAPINE [Suspect]
  5. LOTENSIN [Suspect]
  6. METOPROLOL TARTRATE [Suspect]
  7. VALPROIC ACID [Suspect]

REACTIONS (1)
  - COMPLETED SUICIDE [None]
